FAERS Safety Report 13021766 (Version 2)
Quarter: 2017Q1

REPORT INFORMATION
  Report Type: Spontaneous
  Country: GB (occurrence: GB)
  Receive Date: 20161213
  Receipt Date: 20170112
  Transmission Date: 20170428
  Serious: Yes (Hospitalization, Other)
  Sender: FDA-Public Use
  Company Number: GB-SUN PHARMACEUTICAL INDUSTRIES LTD-2016RR-129084

PATIENT
  Age: 66 Year
  Sex: Female

DRUGS (8)
  1. 5 FU [Concomitant]
     Active Substance: FLUOROURACIL
     Indication: PRODUCT USED FOR UNKNOWN INDICATION
     Route: 065
  2. CISPLATIN. [Concomitant]
     Active Substance: CISPLATIN
     Indication: PRODUCT USED FOR UNKNOWN INDICATION
     Dosage: UNK
     Route: 065
  3. OCTREOTIDE. [Suspect]
     Active Substance: OCTREOTIDE
     Indication: NEUROENDOCRINE TUMOUR
     Dosage: 2500 UG, QD
     Route: 058
     Dates: start: 200804, end: 201103
  4. OCTREOTIDE. [Suspect]
     Active Substance: OCTREOTIDE
     Indication: VIPOMA
  5. HYDROCORTISONE. [Concomitant]
     Active Substance: HYDROCORTISONE
     Indication: PRODUCT USED FOR UNKNOWN INDICATION
     Dosage: 400 MG, QD
     Route: 042
  6. STREPTOMYCIN [Concomitant]
     Active Substance: STREPTOMYCIN\STREPTOMYCIN SULFATE
     Indication: PRODUCT USED FOR UNKNOWN INDICATION
     Route: 065
  7. EVEROLIMUS [Suspect]
     Active Substance: EVEROLIMUS
     Indication: NEUROENDOCRINE TUMOUR
     Route: 065
     Dates: start: 200903
  8. CISPLATIN. [Concomitant]
     Active Substance: CISPLATIN
     Dosage: UNK

REACTIONS (14)
  - Neoplasm progression [Unknown]
  - Dehydration [Unknown]
  - Chest pain [Unknown]
  - Acidosis [Unknown]
  - Pulmonary embolism [Unknown]
  - Pneumonia [Not Recovered/Not Resolved]
  - Hypokalaemia [Unknown]
  - Musculoskeletal chest pain [Unknown]
  - Diarrhoea [Not Recovered/Not Resolved]
  - Metastases to bone [Unknown]
  - Acute kidney injury [Unknown]
  - Fatigue [Unknown]
  - Malignant neoplasm progression [Unknown]
  - Pathological fracture [Unknown]

NARRATIVE: CASE EVENT DATE: 200805
